FAERS Safety Report 17239408 (Version 3)
Quarter: 2021Q3

REPORT INFORMATION
  Report Type: Report from Study
  Country: US (occurrence: US)
  Receive Date: 20200106
  Receipt Date: 20210716
  Transmission Date: 20211014
  Serious: Yes (Death)
  Sender: FDA-Public Use
  Company Number: US-PFIZER INC-2020002958

PATIENT

DRUGS (3)
  1. BUSULFAN. [Suspect]
     Active Substance: BUSULFAN
     Indication: ALLOGENIC BONE MARROW TRANSPLANTATION THERAPY
     Dosage: CAUC OF 60?75 MG X HR/L, DAYS ?5 TO ?2
  2. ALEMTUZUMAB [Suspect]
     Active Substance: ALEMTUZUMAB
     Indication: ALLOGENIC BONE MARROW TRANSPLANTATION THERAPY
     Dosage: 0.5 MG/KG (MAX DOSE 30 MG), DAYS ?12 TO ?10
     Route: 042
  3. FLUDARABINE PHOSPHATE. [Suspect]
     Active Substance: FLUDARABINE PHOSPHATE
     Indication: ALLOGENIC BONE MARROW TRANSPLANTATION THERAPY
     Dosage: CAUC OF 16 OR 18 MG X HR/L, DAYS ?5 TO ?2

REACTIONS (1)
  - Legionella infection [Fatal]
